FAERS Safety Report 16983028 (Version 4)
Quarter: 2019Q4

REPORT INFORMATION
  Report Type: Report from Study
  Country: US (occurrence: US)
  Receive Date: 20191101
  Receipt Date: 20191219
  Transmission Date: 20200122
  Serious: Yes (Other)
  Sender: FDA-Public Use
  Company Number: US-SA-2016SA160589

PATIENT
  Age: 53 Year
  Sex: Male

DRUGS (2)
  1. ALEMTUZUMAB [Suspect]
     Active Substance: ALEMTUZUMAB
     Indication: MULTIPLE SCLEROSIS
     Dosage: 12 MG, QD
     Route: 041
     Dates: start: 20160725, end: 20160729
  2. TYSABRI [Concomitant]
     Active Substance: NATALIZUMAB
     Dosage: UNK UNK, UNK
     Route: 065

REACTIONS (35)
  - Therapeutic response decreased [Unknown]
  - Vision blurred [Not Recovered/Not Resolved]
  - Infection susceptibility increased [Not Recovered/Not Resolved]
  - Somnolence [Unknown]
  - Feeling abnormal [Unknown]
  - CD4 lymphocytes decreased [Not Recovered/Not Resolved]
  - Multiple sclerosis [Not Recovered/Not Resolved]
  - Fatigue [Recovering/Resolving]
  - Muscle atrophy [Not Recovered/Not Resolved]
  - Taste disorder [Not Recovered/Not Resolved]
  - Mycobacterium avium complex infection [Unknown]
  - Throat clearing [Not Recovered/Not Resolved]
  - Feeling abnormal [Not Recovered/Not Resolved]
  - Rhinorrhoea [Unknown]
  - Fungal infection [Unknown]
  - Malaise [Not Recovered/Not Resolved]
  - Weight decreased [Not Recovered/Not Resolved]
  - Cough [Unknown]
  - Sinusitis [Not Recovered/Not Resolved]
  - Pulmonary mass [Recovered/Resolved]
  - Anger [Unknown]
  - Arthritis [Recovering/Resolving]
  - Frustration tolerance decreased [Unknown]
  - Decreased immune responsiveness [Not Recovered/Not Resolved]
  - Asthenia [Unknown]
  - Pyrexia [Unknown]
  - Asthenia [Not Recovered/Not Resolved]
  - Headache [Unknown]
  - Stress [Not Recovered/Not Resolved]
  - Sluggishness [Unknown]
  - Upper-airway cough syndrome [Unknown]
  - Gait disturbance [Not Recovered/Not Resolved]
  - Hypoaesthesia [Not Recovered/Not Resolved]
  - Positron emission tomogram abnormal [Unknown]
  - Oral pain [Not Recovered/Not Resolved]

NARRATIVE: CASE EVENT DATE: 20161026
